FAERS Safety Report 8560217-1 (Version None)
Quarter: 2012Q3

REPORT INFORMATION
  Report Type: 
  Country: None (occurrence: None)
  Receive Date: 20120802
  Receipt Date: 20120731
  Transmission Date: 20120928
  Serious: Yes (Other)
  Sender: FDA-Public Use
  Company Number: JP-PFIZER INC-2012185816

PATIENT
  Age: 64 Year
  Sex: Female

DRUGS (2)
  1. ZETIA [Concomitant]
     Dosage: UNK
  2. LIPITOR [Suspect]
     Dosage: UNK
     Route: 048

REACTIONS (1)
  - WHITE BLOOD CELL COUNT DECREASED [None]
